FAERS Safety Report 9680124 (Version 16)
Quarter: 2019Q4

REPORT INFORMATION
  Report Type: Report from Study
  Country: CA (occurrence: CA)
  Receive Date: 20131111
  Receipt Date: 20191202
  Transmission Date: 20200122
  Serious: Yes (Other)
  Sender: FDA-Public Use
  Company Number: CA-ROCHE-1172708

PATIENT
  Age: 57 Year
  Sex: Female
  Weight: 104.32 kg

DRUGS (17)
  1. IMURAN [Concomitant]
     Active Substance: AZATHIOPRINE
     Indication: RHEUMATOID ARTHRITIS
  2. CANDESARTAN. [Concomitant]
     Active Substance: CANDESARTAN
     Route: 065
  3. RITUXAN [Suspect]
     Active Substance: RITUXIMAB
     Indication: RHEUMATOID ARTHRITIS
     Dosage: LAST DOSE ON 03/JUN/2014
     Route: 042
     Dates: start: 20131104
  4. OMEGA 3 [DOCOSAHEXAENOIC ACID;EICOSAPENTAENOIC ACID] [Concomitant]
     Active Substance: DOCONEXENT\ICOSAPENT
  5. LOSEC [Concomitant]
     Active Substance: OMEPRAZOLE
     Route: 048
     Dates: start: 20140603
  6. PERINDOPRIL [Concomitant]
     Active Substance: PERINDOPRIL
     Indication: HYPERTENSION
     Route: 065
     Dates: start: 20160519
  7. PREMARIN [Concomitant]
     Active Substance: ESTROGENS, CONJUGATED
  8. ZOPICLONE [Concomitant]
     Active Substance: ZOPICLONE
  9. DIPHENHYDRAMINE. [Concomitant]
     Active Substance: DIPHENHYDRAMINE
     Route: 048
     Dates: start: 20140603
  10. ACETAMINOPHEN. [Concomitant]
     Active Substance: ACETAMINOPHEN
     Route: 048
     Dates: start: 20140703
  11. ASA [Concomitant]
     Active Substance: ASPIRIN
     Dosage: PRE-RITUXAN
     Route: 065
  12. COUMADINE [Concomitant]
     Active Substance: WARFARIN SODIUM
     Route: 065
     Dates: start: 201501
  13. ACTEMRA [Suspect]
     Active Substance: TOCILIZUMAB
     Indication: RHEUMATOID ARTHRITIS
     Route: 042
     Dates: start: 20121024, end: 20130515
  14. METHYLPREDNISOLONE. [Suspect]
     Active Substance: METHYLPREDNISOLONE
     Indication: PREMEDICATION
     Route: 042
     Dates: start: 20140603
  15. VALSARTAN. [Concomitant]
     Active Substance: VALSARTAN
  16. SYNTHROID [Concomitant]
     Active Substance: LEVOTHYROXINE SODIUM
     Indication: HYPOTHYROIDISM
  17. INSULIN [Concomitant]
     Active Substance: INSULIN NOS
     Indication: DIABETES MELLITUS

REACTIONS (21)
  - Hepatic enzyme increased [Unknown]
  - Deep vein thrombosis postoperative [Unknown]
  - Weight increased [Recovering/Resolving]
  - Stress fracture [Recovering/Resolving]
  - Influenza [Recovered/Resolved]
  - Gastritis [Unknown]
  - Headache [Unknown]
  - Herpes zoster [Not Recovered/Not Resolved]
  - Malaise [Unknown]
  - Eczema nummular [Unknown]
  - Sinusitis [Recovered/Resolved]
  - Blood glucose increased [Unknown]
  - Joint swelling [Unknown]
  - Sinusitis [Recovered/Resolved]
  - Transaminases increased [Unknown]
  - Hypertension [Unknown]
  - Blood pressure increased [Unknown]
  - Blood pressure increased [Unknown]
  - T-cell lymphoma [Unknown]
  - Cutaneous lymphoma [Unknown]
  - Nasopharyngitis [Recovered/Resolved]

NARRATIVE: CASE EVENT DATE: 20121120
